FAERS Safety Report 16498924 (Version 1)
Quarter: 2019Q2

REPORT INFORMATION
  Report Type: Report from Study
  Country: US (occurrence: US)
  Receive Date: 20190630
  Receipt Date: 20190630
  Transmission Date: 20190711
  Serious: Yes (Hospitalization, Other)
  Sender: FDA-Public Use
  Company Number: US-JNJFOC-20180522116

PATIENT
  Age: 57 Year
  Sex: Male

DRUGS (18)
  1. IMBRUVICA [Suspect]
     Active Substance: IBRUTINIB
     Route: 048
     Dates: start: 20190126
  2. IMBRUVICA [Concomitant]
     Active Substance: IBRUTINIB
     Route: 048
     Dates: start: 20181029, end: 20190129
  3. LYRICA [Concomitant]
     Active Substance: PREGABALIN
  4. IMBRUVICA [Suspect]
     Active Substance: IBRUTINIB
     Indication: CHRONIC LYMPHOCYTIC LEUKAEMIA
     Route: 048
     Dates: start: 20180410
  5. IMBRUVICA [Suspect]
     Active Substance: IBRUTINIB
     Route: 048
     Dates: start: 20180416, end: 20180510
  6. LIDODERM [Concomitant]
     Active Substance: LIDOCAINE
  7. IMBRUVICA [Suspect]
     Active Substance: IBRUTINIB
     Route: 048
     Dates: start: 20190129
  8. IMBRUVICA [Concomitant]
     Active Substance: IBRUTINIB
     Route: 048
     Dates: start: 20140215, end: 20180501
  9. LORATADINE. [Concomitant]
     Active Substance: LORATADINE
  10. IMBRUVICA [Concomitant]
     Active Substance: IBRUTINIB
     Route: 048
     Dates: start: 20181101, end: 20190126
  11. GABAPENTIN. [Concomitant]
     Active Substance: GABAPENTIN
  12. MOTRIN [Concomitant]
     Active Substance: IBUPROFEN
  13. IMBRUVICA [Concomitant]
     Active Substance: IBRUTINIB
     Indication: CHRONIC LYMPHOCYTIC LEUKAEMIA
     Route: 048
     Dates: start: 20160402, end: 20180409
  14. IMBRUVICA [Concomitant]
     Active Substance: IBRUTINIB
     Route: 048
     Dates: start: 20140303, end: 20180415
  15. PRILOSEC [Concomitant]
     Active Substance: OMEPRAZOLE MAGNESIUM
  16. FLOVENT [Concomitant]
     Active Substance: FLUTICASONE PROPIONATE
  17. IMBRUVICA [Suspect]
     Active Substance: IBRUTINIB
     Route: 048
     Dates: start: 20181029
  18. PROVENTIL [Concomitant]
     Active Substance: ALBUTEROL

REACTIONS (15)
  - Malaise [Recovered/Resolved]
  - Nasopharyngitis [Recovered/Resolved]
  - Onychoclasis [Not Recovered/Not Resolved]
  - White blood cell count decreased [Unknown]
  - Neutrophil count decreased [Recovered/Resolved]
  - Platelet count decreased [Unknown]
  - Product dose omission [Unknown]
  - Abdominal distension [Unknown]
  - Pneumonia mycoplasmal [Recovered/Resolved]
  - Muscle tone disorder [Unknown]
  - Product label issue [Unknown]
  - Localised infection [Recovering/Resolving]
  - Disease progression [Unknown]
  - White blood cell count increased [Recovering/Resolving]
  - Fatigue [Not Recovered/Not Resolved]

NARRATIVE: CASE EVENT DATE: 20180510
